FAERS Safety Report 5066410-7 (Version None)
Quarter: 2006Q3

REPORT INFORMATION
  Report Type: 
  Country: None (occurrence: None)
  Receive Date: 20060714
  Receipt Date: 20060519
  Transmission Date: 20061208
  Serious: No
  Sender: FDA-Public Use
  Company Number: 2006SP002121

PATIENT
  Age: 38 Year
  Sex: Female
  Weight: 56.6996 kg

DRUGS (3)
  1. LUNESTA [Suspect]
     Indication: INSOMNIA
     Dosage: 2 MG PRN ORAL ; 1.5 MG PRN ORAL ; .5 MG PRN ORAL
     Route: 048
     Dates: start: 20060514, end: 20060514
  2. LUNESTA [Suspect]
     Indication: INSOMNIA
     Dosage: 2 MG PRN ORAL ; 1.5 MG PRN ORAL ; .5 MG PRN ORAL
     Route: 048
     Dates: start: 20060519
  3. LUNESTA [Suspect]
     Indication: INSOMNIA
     Dosage: 2 MG PRN ORAL ; 1.5 MG PRN ORAL ; .5 MG PRN ORAL
     Route: 048
     Dates: start: 20060601

REACTIONS (4)
  - DIZZINESS [None]
  - FEELING ABNORMAL [None]
  - HEADACHE [None]
  - INSOMNIA [None]
